FAERS Safety Report 14372355 (Version 1)
Quarter: 2018Q1

REPORT INFORMATION
  Report Type: Spontaneous
  Country: US (occurrence: US)
  Receive Date: 20180110
  Receipt Date: 20180110
  Transmission Date: 20180509
  Serious: No
  Sender: FDA-Public Use
  Company Number: US-EISAI MEDICAL RESEARCH-EC-2018-034885

PATIENT
  Sex: Female

DRUGS (1)
  1. LENVIMA [Suspect]
     Active Substance: LENVATINIB
     Indication: THYROID CANCER
     Dosage: UNKNOWN
     Route: 048
     Dates: end: 201801

REACTIONS (3)
  - Blister [Not Recovered/Not Resolved]
  - Rash generalised [Not Recovered/Not Resolved]
  - Hyperkeratosis [Not Recovered/Not Resolved]
